FAERS Safety Report 6152206-1 (Version None)
Quarter: 2009Q2

REPORT INFORMATION
  Report Type: 
  Country: None (occurrence: None)
  Receive Date: 20090410
  Receipt Date: 20090121
  Transmission Date: 20091009
  Serious: No
  Sender: FDA-Public Use
  Company Number: US-ASTRAZENECA-2009UW01598

PATIENT
  Age: 49 Year
  Sex: Female
  Weight: 74.8 kg

DRUGS (8)
  1. ATENOLOL [Suspect]
     Route: 048
  2. XYREM [Suspect]
     Indication: FIBROMYALGIA
     Route: 048
     Dates: start: 20081124
  3. RAMIPRIL [Suspect]
     Indication: HYPERTENSION
     Route: 065
  4. LEXAPRO [Suspect]
     Indication: DEPRESSION
     Route: 065
  5. CYMBALTA [Suspect]
     Route: 065
  6. SIMVASTATIN [Suspect]
     Route: 065
  7. LYRICA [Suspect]
     Route: 065
  8. TRIAMTERENE AND HYDROCHLOROTHIAZIDE [Concomitant]
     Indication: HYPERTENSION

REACTIONS (5)
  - ABDOMINAL DISTENSION [None]
  - ABDOMINAL PAIN [None]
  - BLOOD PRESSURE INCREASED [None]
  - DYSPEPSIA [None]
  - JOINT SWELLING [None]
